FAERS Safety Report 21305912 (Version 2)
Quarter: 2022Q3

REPORT INFORMATION
  Report Type: Spontaneous
  Country: PL (occurrence: None)
  Receive Date: 20220908
  Receipt Date: 20220922
  Transmission Date: 20221026
  Serious: Yes (Other)
  Sender: FDA-Public Use
  Company Number: PL-ROCHE-3171079

PATIENT
  Age: 35 Year
  Sex: Male

DRUGS (1)
  1. OCREVUS [Suspect]
     Active Substance: OCRELIZUMAB
     Indication: Primary progressive multiple sclerosis
     Route: 065
     Dates: start: 20200720, end: 20220222

REACTIONS (2)
  - Neutropenia [Unknown]
  - Pulpitis dental [Recovered/Resolved]

NARRATIVE: CASE EVENT DATE: 20220831
